FAERS Safety Report 6505728-5 (Version None)
Quarter: 2009Q4

REPORT INFORMATION
  Report Type: 
  Country: None (occurrence: None)
  Receive Date: 20091218
  Receipt Date: 20091211
  Transmission Date: 20100525
  Serious: Yes (Other)
  Sender: FDA-Public Use
  Company Number: B0614583A

PATIENT
  Age: 64 Year
  Sex: Male

DRUGS (2)
  1. ALLI [Suspect]
     Route: 048
  2. DIAZEPAM [Concomitant]
     Indication: ANXIETY
     Route: 048

REACTIONS (1)
  - ANXIETY [None]
